FAERS Safety Report 20436459 (Version 3)
Quarter: 2022Q1

REPORT INFORMATION
  Report Type: Spontaneous
  Country: MY (occurrence: MY)
  Receive Date: 20220207
  Receipt Date: 20220322
  Transmission Date: 20220423
  Serious: Yes (Hospitalization, Other)
  Sender: FDA-Public Use
  Company Number: MY-CIPLA (EU) LIMITED-2022MY00598

PATIENT

DRUGS (7)
  1. EFAVIRENZ [Suspect]
     Active Substance: EFAVIRENZ
     Indication: HIV infection
     Dosage: UNK
     Route: 065
     Dates: start: 20181101, end: 2018
  2. TENOFOVIR [Suspect]
     Active Substance: TENOFOVIR
     Indication: HIV infection
     Dosage: UNK
     Route: 065
     Dates: start: 20181101
  3. EMTRICITABINE [Suspect]
     Active Substance: EMTRICITABINE
     Indication: HIV infection
     Dosage: UNK
     Route: 065
     Dates: start: 20181101
  4. DOLUTEGRAVIR [Suspect]
     Active Substance: DOLUTEGRAVIR
     Indication: HIV infection
     Dosage: UNK
     Route: 065
     Dates: start: 2018
  5. RIFAMPIN [Suspect]
     Active Substance: RIFAMPIN
     Indication: Tuberculoid leprosy
     Dosage: 600 MG, MONTLY
     Route: 065
     Dates: start: 201903
  6. DAPSONE [Suspect]
     Active Substance: DAPSONE
     Indication: Tuberculoid leprosy
     Dosage: 100 MILLIGRAM, QD
     Route: 065
     Dates: start: 201903
  7. CLOFAZIMINE [Suspect]
     Active Substance: CLOFAZIMINE
     Indication: Tuberculoid leprosy
     Dosage: 300 MG MONTLY AND 50 MG DAILY FOR TWELVE MONTHS
     Route: 065
     Dates: start: 201906

REACTIONS (6)
  - Tuberculoid leprosy [Recovered/Resolved]
  - Immune reconstitution inflammatory syndrome [Recovered/Resolved]
  - Type 1 lepra reaction [Recovered/Resolved]
  - Disorientation [Unknown]
  - Nausea [Unknown]
  - Vomiting [Unknown]

NARRATIVE: CASE EVENT DATE: 20180101
